FAERS Safety Report 20373640 (Version 1)
Quarter: 2022Q1

REPORT INFORMATION
  Report Type: Report from Study
  Country: US (occurrence: None)
  Receive Date: 20220125
  Receipt Date: 20220125
  Transmission Date: 20220423
  Serious: Yes (Hospitalization, Other)
  Sender: FDA-Public Use
  Company Number: US-ROCHE-3002035

PATIENT
  Age: 55 Year
  Sex: Female
  Weight: 60.8 kg

DRUGS (4)
  1. ATEZOLIZUMAB [Suspect]
     Active Substance: ATEZOLIZUMAB
     Indication: Small cell lung cancer
     Dosage: LAST ADMINISTERED?DATE 13/OCT/2021
     Route: 041
     Dates: start: 20210804
  2. CISPLATIN [Suspect]
     Active Substance: CISPLATIN
     Indication: Small cell lung cancer
     Dosage: LAST?ADMINISTERED?DATE 22/SEP/2021
     Route: 065
     Dates: start: 20210714
  3. ETOPOSIDE [Suspect]
     Active Substance: ETOPOSIDE
     Indication: Small cell lung cancer
     Dosage: LAST ADMINISTERED?DATE 24/SEP/2021
     Route: 065
     Dates: start: 20210714
  4. FENTANYL [Concomitant]
     Active Substance: FENTANYL
     Dosage: PATCH
     Route: 051

REACTIONS (5)
  - Decreased appetite [Recovering/Resolving]
  - Dehydration [Recovering/Resolving]
  - Oesophageal ulcer [Recovering/Resolving]
  - Nausea [Recovering/Resolving]
  - Vomiting [Recovering/Resolving]

NARRATIVE: CASE EVENT DATE: 20211021
